FAERS Safety Report 16181208 (Version 2)
Quarter: 2019Q2

REPORT INFORMATION
  Report Type: Spontaneous
  Country: CO (occurrence: CO)
  Receive Date: 20190410
  Receipt Date: 20190513
  Transmission Date: 20190711
  Serious: Yes (Hospitalization)
  Sender: FDA-Public Use
  Company Number: CO-BIOMARINAP-CO-2019-122995

PATIENT
  Age: 5 Year
  Sex: Female

DRUGS (1)
  1. VIMIZIM [Suspect]
     Active Substance: ELOSULFASE ALFA
     Indication: PRODUCT USED FOR UNKNOWN INDICATION
     Dosage: 36 MILLIGRAM, QW
     Route: 042
     Dates: start: 201508

REACTIONS (4)
  - Knee operation [Recovering/Resolving]
  - Hip surgery [Recovering/Resolving]
  - Ankle operation [Recovering/Resolving]
  - Foot operation [Recovering/Resolving]

NARRATIVE: CASE EVENT DATE: 20190408
